FAERS Safety Report 24008151 (Version 3)
Quarter: 2025Q1

REPORT INFORMATION
  Report Type: Spontaneous
  Country: DE (occurrence: DE)
  Receive Date: 20240625
  Receipt Date: 20250127
  Transmission Date: 20250409
  Serious: Yes (Hospitalization, Other)
  Sender: CELLTRION
  Company Number: DE-CELLTRION INC.-2024DE015001

PATIENT

DRUGS (9)
  1. RITUXIMAB [Suspect]
     Active Substance: RITUXIMAB
     Indication: Follicular lymphoma
     Route: 042
     Dates: start: 20191023
  2. RITUXIMAB [Suspect]
     Active Substance: RITUXIMAB
     Route: 042
     Dates: start: 20240104, end: 20240120
  3. MELPHALAN [Suspect]
     Active Substance: MELPHALAN
     Indication: Follicular lymphoma
     Route: 042
     Dates: start: 20191023
  4. CARMUSTINE [Suspect]
     Active Substance: CARMUSTINE
     Indication: Follicular lymphoma
     Route: 042
     Dates: start: 20191023
  5. OXALIPLATIN [Suspect]
     Active Substance: OXALIPLATIN
     Indication: Follicular lymphoma
     Route: 042
     Dates: start: 20240104, end: 20240120
  6. CYTARABINE [Suspect]
     Active Substance: CYTARABINE
     Indication: Follicular lymphoma
     Route: 042
     Dates: start: 20191023
  7. ETOPOSIDE [Suspect]
     Active Substance: ETOPOSIDE
     Indication: Follicular lymphoma
     Route: 042
     Dates: start: 20191023
  8. GEMCITABINE [Suspect]
     Active Substance: GEMCITABINE
     Indication: Follicular lymphoma
     Route: 042
     Dates: start: 20240104, end: 20240120
  9. TAMOXIFEN [Concomitant]
     Active Substance: TAMOXIFEN

REACTIONS (4)
  - Lymphadenitis [Not Recovered/Not Resolved]
  - Pneumonia [Recovered/Resolved]
  - Atrial fibrillation [Recovered/Resolved]
  - Tachycardia [Recovered/Resolved]

NARRATIVE: CASE EVENT DATE: 20231224
